FAERS Safety Report 11276432 (Version 3)
Quarter: 2019Q4

REPORT INFORMATION
  Report Type: Spontaneous
  Country: PL (occurrence: PL)
  Receive Date: 20150716
  Receipt Date: 20191127
  Transmission Date: 20200122
  Serious: Yes (Death, Other)
  Sender: FDA-Public Use
  Company Number: PL-TEVA-578751ISR

PATIENT
  Age: 21 Year
  Sex: Female

DRUGS (7)
  1. VORICONAZOLE. [Concomitant]
     Active Substance: VORICONAZOLE
  2. CILASTATIN [Concomitant]
     Active Substance: CILASTATIN
  3. CYTARABINE. [Concomitant]
     Active Substance: CYTARABINE
     Dosage: 400 MILLIGRAM DAILY;
  4. IDARUBICIN [Suspect]
     Active Substance: IDARUBICIN
     Dosage: 10 MILLIGRAM DAILY;
     Route: 065
  5. TEICOPLANIN [Concomitant]
     Active Substance: TEICOPLANIN
  6. IMIPENEM [Concomitant]
     Active Substance: IMIPENEM
  7. FLUCONAZOLE. [Suspect]
     Active Substance: FLUCONAZOLE
     Route: 065

REACTIONS (6)
  - Maternal exposure during pregnancy [Unknown]
  - Pneumonia pseudomonal [Unknown]
  - Pneumonia [Unknown]
  - Pancytopenia [Fatal]
  - Septic shock [Unknown]
  - Caesarean section [Unknown]
